FAERS Safety Report 16177288 (Version 1)
Quarter: 2019Q2

REPORT INFORMATION
  Report Type: Report from Study
  Country: None (occurrence: BR)
  Receive Date: 20190410
  Receipt Date: 20190410
  Transmission Date: 20190711
  Serious: Yes (Other)
  Sender: FDA-Public Use
  Company Number: BR-ABBVIE-19K-020-2734807-00

PATIENT
  Sex: Female

DRUGS (3)
  1. HUMIRA [Suspect]
     Active Substance: ADALIMUMAB
     Route: 058
  2. HUMIRA [Suspect]
     Active Substance: ADALIMUMAB
     Indication: CROHN^S DISEASE
     Dosage: WEEK 0
     Route: 058
     Dates: start: 20111201, end: 201112
  3. HUMIRA [Suspect]
     Active Substance: ADALIMUMAB
     Dosage: WEEK 2
     Route: 058
     Dates: start: 201112, end: 201112

REACTIONS (10)
  - Inflammation [Unknown]
  - Abscess intestinal [Unknown]
  - Unevaluable event [Unknown]
  - Gastrointestinal inflammation [Unknown]
  - Excessive cerumen production [Unknown]
  - Intestinal perforation [Unknown]
  - Post procedural discharge [Unknown]
  - Hypoacusis [Unknown]
  - Postoperative wound infection [Not Recovered/Not Resolved]
  - Ear discomfort [Unknown]
